FAERS Safety Report 5493497-X (Version None)
Quarter: 2007Q4

REPORT INFORMATION
  Report Type: 
  Country: None (occurrence: None)
  Receive Date: 20071023
  Receipt Date: 20071011
  Transmission Date: 20080405
  Serious: Yes (Other)
  Sender: FDA-Public Use
  Company Number: US-ELI_LILLY_AND_COMPANY-US200710003305

PATIENT
  Sex: Female

DRUGS (1)
  1. HUMALOG [Suspect]
     Route: 058

REACTIONS (2)
  - NEOPLASM MALIGNANT [None]
  - PANCREATIC DISORDER [None]
